FAERS Safety Report 15988350 (Version 2)
Quarter: 2019Q2

REPORT INFORMATION
  Report Type: Spontaneous
  Country: FR (occurrence: FR)
  Receive Date: 20190221
  Receipt Date: 20190530
  Transmission Date: 20190711
  Serious: Yes (Other)
  Sender: FDA-Public Use
  Company Number: FR-AMGEN-FRASP2019025495

PATIENT
  Age: 86 Year
  Sex: Female
  Weight: 60 kg

DRUGS (2)
  1. PROLIA [Suspect]
     Active Substance: DENOSUMAB
     Indication: PRODUCT USED FOR UNKNOWN INDICATION
     Dosage: UNK, Q6MO
     Route: 058
     Dates: start: 201411, end: 201711
  2. CALCIUM VITAMIN D [Concomitant]
     Active Substance: CALCIUM\VITAMIN D
     Indication: OSTEOPOROSIS

REACTIONS (1)
  - Thoracic vertebral fracture [Recovered/Resolved]

NARRATIVE: CASE EVENT DATE: 201809
